FAERS Safety Report 10815192 (Version 1)
Quarter: 2015Q1

REPORT INFORMATION
  Report Type: Spontaneous
  Country: NO (occurrence: NO)
  Receive Date: 20150218
  Receipt Date: 20150218
  Transmission Date: 20150721
  Serious: Yes (Hospitalization, Disabling, Other)
  Sender: FDA-Public Use
  Company Number: NO-PFIZER INC-2015054913

PATIENT
  Age: 24 Year
  Sex: Female

DRUGS (3)
  1. EPIDUO [Concomitant]
     Active Substance: ADAPALENE\BENZOYL PEROXIDE
     Dosage: GEL 0.1%/2.5%
     Dates: start: 20111207
  2. TETRALYSAL [Concomitant]
     Active Substance: LYMECYCLINE
     Dosage: 300 MG, 1 X 2
     Dates: start: 20111207
  3. CHAMPIX [Suspect]
     Active Substance: VARENICLINE TARTRATE
     Indication: SMOKING CESSATION THERAPY
     Dosage: START PACK 0.5 + 1.0
     Dates: start: 20111207

REACTIONS (10)
  - Psychotic disorder [Not Recovered/Not Resolved]
  - Abnormal behaviour [Unknown]
  - Disease recurrence [Unknown]
  - Asthma [Unknown]
  - Alcohol poisoning [Unknown]
  - Epilepsy [Unknown]
  - Schizophrenia [Not Recovered/Not Resolved]
  - Encephalopathy [Unknown]
  - Anxiety [Unknown]
  - Cognitive disorder [Unknown]

NARRATIVE: CASE EVENT DATE: 2012
